FAERS Safety Report 6410274-3 (Version None)
Quarter: 2009Q4

REPORT INFORMATION
  Report Type: 
  Country: None (occurrence: None)
  Receive Date: 20091022
  Receipt Date: 20091019
  Transmission Date: 20100525
  Serious: Yes (Other)
  Sender: FDA-Public Use
  Company Number: A0812671A

PATIENT
  Sex: Male

DRUGS (1)
  1. SERETIDE [Suspect]
     Indication: ASTHMA
     Dosage: 2U TWICE PER DAY
     Route: 055
     Dates: start: 20070101

REACTIONS (2)
  - ASTHMATIC CRISIS [None]
  - OVERDOSE [None]
